FAERS Safety Report 18495565 (Version 1)
Quarter: 2020Q4

REPORT INFORMATION
  Report Type: Other
  Country: AT (occurrence: AT)
  Receive Date: 20201112
  Receipt Date: 20201112
  Transmission Date: 20210114
  Serious: Yes (Hospitalization, Other)
  Sender: FDA-Public Use
  Company Number: AT-ACI HEALTHCARE LIMITED-2095854

PATIENT
  Age: 78 Year
  Sex: Female

DRUGS (10)
  1. LACOSAMIDE. [Concomitant]
     Active Substance: LACOSAMIDE
     Route: 065
  2. THIOPENTAL-SODIUM [Concomitant]
     Route: 065
  3. KETAMINE HYDROCHLORIDE. [Concomitant]
     Active Substance: KETAMINE HYDROCHLORIDE
     Route: 065
  4. VALPROATE SODIUM. [Concomitant]
     Active Substance: VALPROATE SODIUM
     Route: 065
  5. LEVETIRACETAM. [Suspect]
     Active Substance: LEVETIRACETAM
     Indication: STATUS EPILEPTICUS
     Route: 065
  6. PERAMPANEL [Concomitant]
     Active Substance: PERAMPANEL
     Route: 065
  7. PROPOFOL. [Concomitant]
     Active Substance: PROPOFOL
     Route: 065
  8. MIDAZOLAM. [Concomitant]
     Active Substance: MIDAZOLAM
     Route: 065
  9. CORTISONE [Concomitant]
     Active Substance: CORTISONE
     Route: 065
  10. PHENYTOIN. [Concomitant]
     Active Substance: PHENYTOIN
     Route: 065

REACTIONS (1)
  - Drug ineffective [Unknown]
